FAERS Safety Report 10137600 (Version 1)
Quarter: 2014Q2

REPORT INFORMATION
  Report Type: Spontaneous
  Country: US (occurrence: None)
  Receive Date: 20140428
  Receipt Date: 20140428
  Transmission Date: 20141212
  Serious: Yes (Other)
  Sender: FDA-Public Use
  Company Number: None

PATIENT
  Age: 57 Year
  Sex: Female
  Weight: 55.79 kg

DRUGS (2)
  1. CLINDAMYCIN [Suspect]
     Indication: INFECTION
     Dates: start: 20131021, end: 20131022
  2. CLINDAMYCIN [Suspect]
     Indication: TOOTH DISORDER
     Dates: start: 20131021, end: 20131022

REACTIONS (5)
  - Restlessness [None]
  - Anxiety [None]
  - Agitation [None]
  - Depersonalisation [None]
  - Vision blurred [None]
